FAERS Safety Report 12550242 (Version 2)
Quarter: 2016Q4

REPORT INFORMATION
  Report Type: Report from Study
  Country: JP (occurrence: JP)
  Receive Date: 20160712
  Receipt Date: 20161116
  Transmission Date: 20170207
  Serious: Yes (Death)
  Sender: FDA-Public Use
  Company Number: JP-EISAI MEDICAL RESEARCH-EC-2016-018506

PATIENT
  Age: 75 Year
  Sex: Female
  Weight: 41 kg

DRUGS (8)
  1. HALAVEN [Suspect]
     Active Substance: ERIBULIN MESYLATE
     Indication: TUBULAR BREAST CARCINOMA
     Route: 041
     Dates: start: 20150424, end: 20150924
  2. HALAVEN [Suspect]
     Active Substance: ERIBULIN MESYLATE
     Route: 041
     Dates: start: 20151203, end: 20160106
  3. FAMOTIDINE. [Concomitant]
     Active Substance: FAMOTIDINE
  4. MAGLAX [Concomitant]
     Active Substance: MAGNESIUM OXIDE
  5. HALAVEN [Suspect]
     Active Substance: ERIBULIN MESYLATE
     Route: 041
     Dates: start: 20151008, end: 20151008
  6. HALAVEN [Suspect]
     Active Substance: ERIBULIN MESYLATE
     Route: 041
     Dates: start: 20151022, end: 20151119
  7. RANMARK [Concomitant]
     Active Substance: DENOSUMAB
  8. DEPAS [Concomitant]
     Active Substance: ETIZOLAM

REACTIONS (2)
  - Malaise [Unknown]
  - Dyspnoea [Fatal]

NARRATIVE: CASE EVENT DATE: 20151207
